FAERS Safety Report 11895759 (Version 1)
Quarter: 2016Q1

REPORT INFORMATION
  Report Type: Spontaneous
  Country: US (occurrence: US)
  Receive Date: 20160107
  Receipt Date: 20160107
  Transmission Date: 20160526
  Serious: No
  Sender: FDA-Public Use
  Company Number: US-DRREDDYS-USA/USA/15/0050705

PATIENT
  Sex: Female
  Weight: 47.6 kg

DRUGS (1)
  1. HABITROL [Suspect]
     Active Substance: NICOTINE
     Indication: SMOKING CESSATION THERAPY
     Route: 061
     Dates: start: 201508

REACTIONS (4)
  - Nicotine dependence [Unknown]
  - Contusion [Unknown]
  - Product quality issue [Unknown]
  - Application site pain [Unknown]
